FAERS Safety Report 7957172-1 (Version None)
Quarter: 2011Q4

REPORT INFORMATION
  Report Type: 
  Country: None (occurrence: None)
  Receive Date: 20111205
  Receipt Date: 20111124
  Transmission Date: 20120403
  Serious: Yes (Other)
  Sender: FDA-Public Use
  Company Number: GB-JNJFOC-20111110962

PATIENT
  Weight: 2.27 kg

DRUGS (2)
  1. STELARA [Suspect]
     Indication: EXPOSURE VIA FATHER
     Route: 064
  2. STELARA [Suspect]
     Indication: FOETAL EXPOSURE DURING PREGNANCY
     Route: 064

REACTIONS (1)
  - PREMATURE BABY [None]
